FAERS Safety Report 4269799-1 (Version None)
Quarter: 2004Q1

REPORT INFORMATION
  Report Type: 
  Country: None (occurrence: None)
  Receive Date: 20040113
  Receipt Date: 19980926
  Transmission Date: 20041129
  Serious: No
  Sender: FDA-Public Use
  Company Number: 6984

PATIENT
  Age: 68 Year
  Sex: Female

DRUGS (3)
  1. PACLITAXEL [Suspect]
     Indication: OVARIAN CANCER
     Dosage: IV
     Route: 042
  2. CARBOPLATIN [Suspect]
     Indication: OVARIAN CANCER
     Dosage: IV
     Route: 042
  3. DEXAMETHASONE [Concomitant]

REACTIONS (7)
  - ALANINE AMINOTRANSFERASE INCREASED [None]
  - BLOOD ALKALINE PHOSPHATASE INCREASED [None]
  - CEREBELLAR ATAXIA [None]
  - EXTRAPYRAMIDAL DISORDER [None]
  - LIVER FUNCTION TEST ABNORMAL [None]
  - TREMOR [None]
  - VISUAL DISTURBANCE [None]
